FAERS Safety Report 9651965 (Version 1)
Quarter: 2013Q4

REPORT INFORMATION
  Report Type: Spontaneous
  Country: US (occurrence: None)
  Receive Date: 20131028
  Receipt Date: 20131028
  Transmission Date: 20140711
  Serious: Yes (Hospitalization)
  Sender: FDA-Public Use
  Company Number: None

PATIENT
  Age: 22 Year
  Sex: Male
  Weight: 96 kg

DRUGS (1)
  1. ATRIPLA [Suspect]
     Indication: HIV INFECTION
     Dosage: ATRIPLE, ONE DAILY, PO
     Route: 048
     Dates: start: 20131016, end: 20131020

REACTIONS (5)
  - Asthenia [None]
  - Pruritus [None]
  - Presyncope [None]
  - Heart rate decreased [None]
  - Blood pressure decreased [None]
